FAERS Safety Report 14816327 (Version 3)
Quarter: 2018Q2

REPORT INFORMATION
  Report Type: Spontaneous
  Country: GB (occurrence: GB)
  Receive Date: 20180426
  Receipt Date: 20180529
  Transmission Date: 20180711
  Serious: Yes (Hospitalization, Other)
  Sender: FDA-Public Use
  Company Number: GB-SHIRE-GB201814440

PATIENT

DRUGS (5)
  1. AMOXICLAV [Concomitant]
     Active Substance: AMOXICILLIN\CLAVULANIC ACID
     Indication: ANTI-INFECTIVE THERAPY
  2. KIOVIG [Suspect]
     Active Substance: HUMAN IMMUNOGLOBULIN G
     Indication: IMMUNODEFICIENCY COMMON VARIABLE
     Dosage: 30 G, EVERY 3 WK
     Route: 042
     Dates: start: 20180328, end: 20180328
  3. COCODAMOL [Concomitant]
     Active Substance: ACETAMINOPHEN\CODEINE PHOSPHATE
     Indication: ANALGESIC THERAPY
  4. KIOVIG [Suspect]
     Active Substance: HUMAN IMMUNOGLOBULIN G
     Dosage: 30 G, EVERY 3 WK
     Route: 042
     Dates: start: 20180328, end: 20180328
  5. PENICILLIN [Concomitant]
     Active Substance: PENICILLIN
     Indication: PROPHYLAXIS

REACTIONS (7)
  - Ascites [Recovering/Resolving]
  - Oesophageal varices haemorrhage [Recovering/Resolving]
  - Bacteraemia [Recovering/Resolving]
  - Haematemesis [Recovering/Resolving]
  - Portal vein thrombosis [Recovering/Resolving]
  - Diarrhoea [Recovering/Resolving]
  - Colitis [Recovering/Resolving]

NARRATIVE: CASE EVENT DATE: 20180403
